FAERS Safety Report 8035659-3 (Version None)
Quarter: 2012Q1

REPORT INFORMATION
  Report Type: 
  Country: None (occurrence: None)
  Receive Date: 20120111
  Receipt Date: 20111230
  Transmission Date: 20120608
  Serious: Yes (Hospitalization)
  Sender: FDA-Public Use
  Company Number: DE-UCBSA-048511

PATIENT
  Age: 71 Year
  Sex: Female

DRUGS (3)
  1. KEPPRA [Suspect]
     Dates: start: 20080101
  2. CARBAMAZEPINE [Concomitant]
  3. FERROUS SULFATE TAB [Suspect]
     Dosage: 100 MG
     Dates: start: 20111230

REACTIONS (4)
  - DIZZINESS [None]
  - CHEST DISCOMFORT [None]
  - CONVULSION [None]
  - FATIGUE [None]
